FAERS Safety Report 16066968 (Version 1)
Quarter: 2019Q1

REPORT INFORMATION
  Report Type: Report from Study
  Country: GB (occurrence: GB)
  Receive Date: 20190313
  Receipt Date: 20190313
  Transmission Date: 20190418
  Serious: Yes (Hospitalization)
  Sender: FDA-Public Use
  Company Number: PHHY2019GB054918

PATIENT
  Sex: Male

DRUGS (2)
  1. COSENTYX [Suspect]
     Active Substance: SECUKINUMAB
     Dosage: 150 MG, QMO
     Route: 058
  2. COSENTYX [Suspect]
     Active Substance: SECUKINUMAB
     Indication: PSORIATIC ARTHROPATHY
     Dosage: 150 MG, QW (WEEKS 0,1,2,3 FOLLOWED BY ONCE MONTHLY THEREAFTER AS DIRECTED)
     Route: 058
     Dates: start: 20181212

REACTIONS (5)
  - Inflammation [Unknown]
  - Malaise [Unknown]
  - Conjunctivitis [Unknown]
  - Eczema [Unknown]
  - Fungal infection [Unknown]
